FAERS Safety Report 9132599 (Version 2)
Quarter: 2013Q1

REPORT INFORMATION
  Report Type: Spontaneous
  Country: SE (occurrence: SE)
  Receive Date: 20130301
  Receipt Date: 20130307
  Transmission Date: 20140127
  Serious: Yes (Hospitalization)
  Sender: FDA-Public Use
  Company Number: SE-MERCK-1302SWE010722

PATIENT
  Age: 39 Year
  Sex: Male

DRUGS (14)
  1. ENALAPRIL MALEATE [Suspect]
     Dosage: UNK
     Route: 048
     Dates: start: 201210
  2. CANDESARTAN CILEXETIL [Suspect]
     Dosage: UNK
     Route: 048
     Dates: start: 201210
  3. ZANIDIP [Suspect]
     Dosage: UNK
     Dates: start: 201210
  4. [THERAPY UNSPECIFIED] [Suspect]
     Dosage: UNK
     Dates: start: 201210
  5. OXYNORM [Concomitant]
  6. PROGRAF [Concomitant]
  7. OMEPRAZOLE [Concomitant]
  8. RENVELA [Concomitant]
  9. FOLACIN [Concomitant]
  10. PANODIL [Concomitant]
  11. BEHEPAN [Concomitant]
  12. FURIX [Concomitant]
  13. SPIRONOLACTONE [Concomitant]
  14. PREDNISOLONE [Concomitant]

REACTIONS (2)
  - Cholestasis [Unknown]
  - Hepatotoxicity [Unknown]
